FAERS Safety Report 4797164-7 (Version None)
Quarter: 2005Q4

REPORT INFORMATION
  Report Type: 
  Country: None (occurrence: None)
  Receive Date: 20051011
  Receipt Date: 20051011
  Transmission Date: 20060501
  Serious: Yes (Life-Threatening, Hospitalization)
  Sender: FDA-Public Use
  Company Number: None

PATIENT
  Age: 57 Year
  Sex: Male
  Weight: 116 kg

DRUGS (1)
  1. DIPYRIDAMOLE [Suspect]
     Indication: SCAN MYOCARDIAL PERFUSION
     Dosage: 60MG IN 40ML IVP
     Route: 042
     Dates: start: 20050316

REACTIONS (2)
  - HYPERTENSION [None]
  - RESPIRATORY DISTRESS [None]
